FAERS Safety Report 17084991 (Version 2)
Quarter: 2019Q4

REPORT INFORMATION
  Report Type: Report from Study
  Country: None (occurrence: US)
  Receive Date: 20191127
  Receipt Date: 20191204
  Transmission Date: 20200122
  Serious: Yes (Hospitalization, Other)
  Sender: FDA-Public Use
  Company Number: US-ABBVIE-19K-163-3144548-00

PATIENT
  Age: 75 Year
  Sex: Male

DRUGS (5)
  1. IMBRUVICA [Suspect]
     Active Substance: IBRUTINIB
     Dosage: 140 MG, QD
     Route: 048
     Dates: start: 20190418
  2. IMBRUVICA [Suspect]
     Active Substance: IBRUTINIB
     Dosage: 420 MG, QD
     Route: 048
     Dates: start: 20190418
  3. IMBRUVICA [Suspect]
     Active Substance: IBRUTINIB
     Dosage: 420 MG, QD
     Route: 048
     Dates: end: 20190626
  4. IMBRUVICA [Suspect]
     Active Substance: IBRUTINIB
     Dosage: 140 MG, TID
     Route: 048
  5. IMBRUVICA [Suspect]
     Active Substance: IBRUTINIB
     Indication: LYMPHOCYTIC LEUKAEMIA
     Dosage: 420 MG, QD
     Route: 048
     Dates: start: 20190417

REACTIONS (15)
  - Generalised oedema [Unknown]
  - Sinus disorder [Unknown]
  - Fluid retention [Not Recovered/Not Resolved]
  - Haemoglobin decreased [Unknown]
  - Swelling [Unknown]
  - Dyspnoea [Recovering/Resolving]
  - Pleural effusion [Unknown]
  - Red blood cell abnormality [Unknown]
  - Oedema peripheral [Recovering/Resolving]
  - Constipation [Unknown]
  - Acute kidney injury [Unknown]
  - Blood count abnormal [Not Recovered/Not Resolved]
  - Blister [Unknown]
  - Abdominal distension [Unknown]
  - Hepatic cirrhosis [Unknown]

NARRATIVE: CASE EVENT DATE: 20191105
